FAERS Safety Report 9149457 (Version 1)
Quarter: 2013Q1

REPORT INFORMATION
  Report Type: Spontaneous
  Country: US (occurrence: None)
  Receive Date: 20130301
  Receipt Date: 20130301
  Transmission Date: 20140127
  Serious: Yes (Life-Threatening)
  Sender: FDA-Public Use
  Company Number: None

PATIENT
  Age: 16 Year
  Sex: Male
  Weight: 39.4 kg

DRUGS (1)
  1. PEGASPARGASE [Suspect]
     Indication: ACUTE LYMPHOCYTIC LEUKAEMIA
     Dosage: 3000 UNITS PER PROTOCOL IV
     Route: 042
     Dates: start: 20121113, end: 20130131

REACTIONS (4)
  - Cough [None]
  - Dyspnoea [None]
  - Oxygen saturation decreased [None]
  - Cardio-respiratory arrest [None]
